FAERS Safety Report 4639268-5 (Version None)
Quarter: 2005Q2

REPORT INFORMATION
  Report Type: 
  Country: None (occurrence: None)
  Receive Date: 20050418
  Receipt Date: 20050401
  Transmission Date: 20051028
  Serious: Yes (Other)
  Sender: FDA-Public Use
  Company Number: US124343; HQWYE244522MAR05

PATIENT
  Age: 68 Year
  Sex: Female

DRUGS (8)
  1. ENBREL [Suspect]
     Indication: RHEUMATOID ARTHRITIS
     Dosage: 2 IN 1 WEEKS, PARENTERAL
     Route: 051
  2. PREDNISONE [Concomitant]
  3. ALLOPURINOL [Concomitant]
  4. LEVOTHYROXINE SODIUM [Concomitant]
  5. OMEPRAZOLE [Concomitant]
  6. RALOXIFENE HCL [Concomitant]
  7. CALCIUM GLUCONATE [Concomitant]
  8. UNSPECIFIED VITAMINS [Concomitant]

REACTIONS (1)
  - LUPUS VASCULITIS [None]
